FAERS Safety Report 5159701-2 (Version None)
Quarter: 2006Q4

REPORT INFORMATION
  Report Type: 
  Country: None (occurrence: None)
  Receive Date: 20061129
  Receipt Date: 20061114
  Transmission Date: 20070319
  Serious: Yes (Hospitalization)
  Sender: FDA-Public Use
  Company Number: CH-ROCHE-471243

PATIENT
  Age: 65 Year
  Sex: Male

DRUGS (2)
  1. PEGASYS [Suspect]
     Indication: HEPATITIS C
     Dosage: ALTOGETHER THE PATIENT RECEIVED FOUR INJECTIONS.
     Route: 058
     Dates: start: 20061015, end: 20061115
  2. COPEGUS [Concomitant]
     Indication: HEPATITIS C
     Dates: start: 20061015, end: 20061115

REACTIONS (2)
  - MONONEURITIS [None]
  - MUSCLE ATROPHY [None]
